FAERS Safety Report 4920269-4 (Version None)
Quarter: 2006Q1

REPORT INFORMATION
  Report Type: 
  Country: None (occurrence: None)
  Receive Date: 20060223
  Receipt Date: 20060220
  Transmission Date: 20060701
  Serious: Yes (Disabling)
  Sender: FDA-Public Use
  Company Number: BR-GLAXOSMITHKLINE-A0594676A

PATIENT
  Age: 31 Year
  Sex: Female

DRUGS (10)
  1. PAXIL CR [Suspect]
     Indication: DEPRESSION
     Dosage: 25MG PER DAY
     Route: 048
  2. AROPAX [Suspect]
     Indication: DEPRESSION
     Route: 048
  3. OLCADIL [Suspect]
     Indication: DRUG USE FOR UNKNOWN INDICATION
     Route: 065
  4. ALPRAZOLAM [Concomitant]
  5. CLONAZEPAM [Concomitant]
  6. ZOLPIDEM [Concomitant]
     Dosage: 5MG PER DAY
  7. METHYLPHENIDATE HCL [Concomitant]
  8. WELLBUTRIN [Concomitant]
     Route: 048
  9. PERICYAZINE [Concomitant]
  10. TRILEPTAL [Concomitant]

REACTIONS (6)
  - ANXIETY [None]
  - DRUG INEFFECTIVE [None]
  - DYSGRAPHIA [None]
  - HYPOTENSION [None]
  - SYNCOPE [None]
  - TREMOR [None]
